FAERS Safety Report 24948994 (Version 2)
Quarter: 2025Q1

REPORT INFORMATION
  Report Type: Spontaneous
  Country: PT (occurrence: PT)
  Receive Date: 20250210
  Receipt Date: 20250213
  Transmission Date: 20250408
  Serious: Yes (Other)
  Sender: JOHNSON AND JOHNSON
  Company Number: None

PATIENT
  Age: 41 Year
  Sex: Female
  Weight: 63 kg

DRUGS (2)
  1. RILPIVIRINE [Suspect]
     Active Substance: RILPIVIRINE
     Indication: HIV infection
     Dosage: INJECTABLE ART IS DONE ON A SCHEDULE OF WEEK 0, WEEK 4, AND EVERY 8 WEEKS THEREAFTER.
     Route: 030
     Dates: start: 20241119, end: 20241119
  2. VOCABRIA [Suspect]
     Active Substance: CABOTEGRAVIR SODIUM
     Indication: HIV infection
     Dosage: INJECTABLE ART IS DONE ON A SCHEDULE OF WEEK 0, WEEK 4, AND EVERY 8 WEEKS THEREAFTER.
     Route: 030
     Dates: start: 20241119, end: 20241119

REACTIONS (14)
  - Injection site pain [Recovered/Resolved]
  - Injection site discomfort [Recovered/Resolved]
  - Headache [Recovered/Resolved]
  - Abdominal discomfort [Recovered/Resolved]
  - Myalgia [Recovered/Resolved]
  - Abdominal pain [Recovered/Resolved]
  - Fatigue [Recovered/Resolved]
  - Induration [Recovered/Resolved]
  - Injection site oedema [Recovered/Resolved]
  - Feeling hot [Recovered/Resolved]
  - Malaise [Recovered/Resolved]
  - Dry mouth [Recovered/Resolved]
  - Anxiety [Recovered/Resolved]
  - Pyrexia [Recovered/Resolved]

NARRATIVE: CASE EVENT DATE: 20241121
